FAERS Safety Report 5924592-6 (Version None)
Quarter: 2008Q4

REPORT INFORMATION
  Report Type: 
  Country: None (occurrence: None)
  Receive Date: 20081020
  Receipt Date: 20081013
  Transmission Date: 20090506
  Serious: Yes (Other)
  Sender: FDA-Public Use
  Company Number: GB-AMGEN-US310227

PATIENT
  Age: 85 Year
  Sex: Female

DRUGS (2)
  1. ENBREL [Suspect]
     Indication: RHEUMATOID ARTHRITIS
     Route: 058
  2. METHOTREXATE [Suspect]
     Dosage: UNKNOWN

REACTIONS (2)
  - GASTROENTERITIS [None]
  - PALPITATIONS [None]
